FAERS Safety Report 6960387-2 (Version None)
Quarter: 2010Q3

REPORT INFORMATION
  Report Type: 
  Country: None (occurrence: None)
  Receive Date: 20100823
  Receipt Date: 20100623
  Transmission Date: 20110219
  Serious: No
  Sender: FDA-Public Use
  Company Number: 014776

PATIENT
  Sex: Female
  Weight: 53.5 kg

DRUGS (2)
  1. CIMZIA [Suspect]
     Indication: CROHN'S DISEASE
     Dosage: 200 MG 1X/2 WEEKS SUBCUTANEOUS
     Route: 058
     Dates: start: 20100401
  2. METHOTREXATE [Concomitant]

REACTIONS (3)
  - CYSTITIS [None]
  - INFECTION [None]
  - URINARY TRACT INFECTION FUNGAL [None]
